FAERS Safety Report 9063994 (Version 1)
Quarter: 2013Q1

REPORT INFORMATION
  Report Type: Report from Study
  Country: US (occurrence: US)
  Receive Date: 20130131
  Receipt Date: 20130131
  Transmission Date: 20140127
  Serious: No
  Sender: FDA-Public Use
  Company Number: US-ABBOTT-12P-163-1017503-00

PATIENT
  Age: 29 Year
  Sex: Male

DRUGS (4)
  1. HUMIRA [Suspect]
     Indication: CROHN^S DISEASE
     Route: 058
     Dates: start: 20120519
  2. COLAZAL [Concomitant]
     Indication: CROHN^S DISEASE
     Dosage: 750 MG, 9 TABS DAILY
  3. CLARITIN [Concomitant]
     Indication: SEASONAL ALLERGY
  4. TYLENOL [Concomitant]
     Indication: HEADACHE

REACTIONS (1)
  - Heart rate increased [Recovered/Resolved]
